FAERS Safety Report 9638885 (Version 1)
Quarter: 2013Q4

REPORT INFORMATION
  Report Type: Spontaneous
  Country: US (occurrence: US)
  Receive Date: 20131022
  Receipt Date: 20131022
  Transmission Date: 20140711
  Serious: No
  Sender: FDA-Public Use
  Company Number: US-BRISTOL-MYERS SQUIBB COMPANY-19119577

PATIENT
  Age: 84 Year
  Sex: Male

DRUGS (2)
  1. ELIQUIS [Suspect]
     Dosage: FOR A MONTH
  2. HYDROCHLOROTHIAZIDE [Concomitant]

REACTIONS (3)
  - Dyspnoea [Unknown]
  - Pruritus [Unknown]
  - Fatigue [Unknown]
